FAERS Safety Report 15248595 (Version 1)
Quarter: 2018Q3

REPORT INFORMATION
  Report Type: Spontaneous
  Country: US (occurrence: US)
  Receive Date: 20180716
  Receipt Date: 20180716
  Transmission Date: 20181010
  Serious: Yes (Other)
  Sender: FDA-Public Use
  Company Number: None

PATIENT
  Age: 65 Year
  Sex: Female
  Weight: 66.6 kg

DRUGS (12)
  1. PROLIA [Suspect]
     Active Substance: DENOSUMAB
     Indication: OSTEOPOROSIS
     Dosage: ?          QUANTITY:1 INJECTION(S);OTHER FREQUENCY:EVERY 6 MONTHS;?
     Route: 030
     Dates: start: 20180425
  2. LIPO. FLAVONOID [Concomitant]
  3. VITAMIN D3 [Concomitant]
     Active Substance: CHOLECALCIFEROL
  4. ROSUVASTATIN CALCIUM. [Concomitant]
     Active Substance: ROSUVASTATIN CALCIUM
  5. RESTASIS [Concomitant]
     Active Substance: CYCLOSPORINE
  6. OMEGA 3 FATTY ACIDS [Concomitant]
     Active Substance: OMEGA-3 FATTY ACIDS
  7. BONE UP CALCIUM [Concomitant]
  8. MULTIVIATAMIN [Concomitant]
  9. GLUCOSMINE [Concomitant]
  10. SYNTHROID [Concomitant]
     Active Substance: LEVOTHYROXINE SODIUM
  11. EVENING PRIMROSE [Concomitant]
  12. PROBIOTIC [Concomitant]
     Active Substance: PROBIOTICS NOS

REACTIONS (6)
  - Feeling abnormal [None]
  - Nasopharyngitis [None]
  - Dysuria [None]
  - Haemangioma of skin [None]
  - Drug ineffective [None]
  - Tinnitus [None]

NARRATIVE: CASE EVENT DATE: 20180425
